FAERS Safety Report 13285645 (Version 1)
Quarter: 2017Q1

REPORT INFORMATION
  Report Type: Not Available
  Country: US (occurrence: US)
  Receive Date: 20170301
  Receipt Date: 20170301
  Transmission Date: 20170428
  Serious: No
  Sender: FDA-Public Use
  Company Number: US-MEDIMETRIKS-2016-US-000303

PATIENT
  Sex: Male

DRUGS (1)
  1. FLUOCINOLONE ACETONIDE TOPICAL [Suspect]
     Active Substance: FLUOCINOLONE ACETONIDE
     Dosage: APPLIED TO FACE TWICE DAILY
     Route: 061
     Dates: start: 201510, end: 20151102

REACTIONS (1)
  - Skin discolouration [Unknown]

NARRATIVE: CASE EVENT DATE: 201510
